FAERS Safety Report 8577975-2 (Version None)
Quarter: 2012Q3

REPORT INFORMATION
  Report Type: 
  Country: None (occurrence: None)
  Receive Date: 20120808
  Receipt Date: 20120803
  Transmission Date: 20120928
  Serious: Yes (Life-Threatening, Other)
  Sender: FDA-Public Use
  Company Number: BR-SHIRE-ALL1-2012-03494

PATIENT
  Age: 56 Year
  Sex: Male

DRUGS (1)
  1. MESALAMINE [Suspect]
     Indication: PROCTOCOLITIS
     Dosage: 1 DF, 2X/DAY:BID
     Route: 048
     Dates: start: 20110101

REACTIONS (3)
  - LUNG NEOPLASM [None]
  - INTERSTITIAL LUNG DISEASE [None]
  - COUGH [None]
